FAERS Safety Report 7717287-X (Version None)
Quarter: 2011Q3

REPORT INFORMATION
  Report Type: 
  Country: None (occurrence: None)
  Receive Date: 20110830
  Receipt Date: 20110818
  Transmission Date: 20111222
  Serious: Yes (Hospitalization)
  Sender: FDA-Public Use
  Company Number: CA-JNJFOC-20110808517

PATIENT
  Sex: Male
  Weight: 72.58 kg

DRUGS (1)
  1. STELARA [Suspect]
     Indication: PSORIASIS
     Dosage: 0, 4, Q12 WEEKS
     Route: 058
     Dates: start: 20110307, end: 20110707

REACTIONS (1)
  - ARTERIAL OCCLUSIVE DISEASE [None]
